FAERS Safety Report 15862453 (Version 1)
Quarter: 2019Q1

REPORT INFORMATION
  Report Type: Spontaneous
  Country: DE (occurrence: DE)
  Receive Date: 20190124
  Receipt Date: 20190124
  Transmission Date: 20190417
  Serious: Yes (Other)
  Sender: FDA-Public Use
  Company Number: PHHY2019DE011876

PATIENT
  Sex: Male

DRUGS (1)
  1. INTERFERON BETA-1B [Suspect]
     Active Substance: INTERFERON BETA-1B
     Indication: MULTIPLE SCLEROSIS
     Dosage: 250 ?G, QOD
     Route: 058
     Dates: start: 19970101

REACTIONS (6)
  - Atrial fibrillation [Unknown]
  - Impaired healing [Not Recovered/Not Resolved]
  - Abdominal wall wound [Unknown]
  - Weight decreased [Unknown]
  - Abdominal wall haematoma [Unknown]
  - Injection site reaction [Unknown]

NARRATIVE: CASE EVENT DATE: 201402
